FAERS Safety Report 5624693-6 (Version None)
Quarter: 2008Q1

REPORT INFORMATION
  Report Type: 
  Country: None (occurrence: None)
  Receive Date: 20080213
  Receipt Date: 20080211
  Transmission Date: 20080703
  Serious: Yes (Hospitalization)
  Sender: FDA-Public Use
  Company Number: B0504875A

PATIENT
  Age: 45 Year
  Sex: Female

DRUGS (5)
  1. ZOVIRAX [Suspect]
     Route: 042
     Dates: start: 20071107
  2. MORPHINE [Suspect]
     Dosage: 60MG PER DAY
     Route: 042
     Dates: start: 20071107, end: 20071111
  3. CIFLOX [Suspect]
     Dosage: 200MCG THREE TIMES PER DAY
     Route: 042
     Dates: start: 20071109, end: 20071112
  4. TAZOCILLINE [Suspect]
     Route: 042
     Dates: start: 20071107
  5. VANCOMYCIN HCL [Suspect]
     Route: 042
     Dates: start: 20071107, end: 20071115

REACTIONS (4)
  - CONFUSIONAL STATE [None]
  - DELIRIUM [None]
  - HALLUCINATION [None]
  - REFUSAL OF TREATMENT BY PATIENT [None]
